FAERS Safety Report 5286124-8 (Version None)
Quarter: 2007Q1

REPORT INFORMATION
  Report Type: 
  Country: None (occurrence: None)
  Receive Date: 20070104
  Receipt Date: 20060821
  Transmission Date: 20070707
  Serious: No
  Sender: FDA-Public Use
  Company Number: BDI-008550

PATIENT
  Age: 43 Year
  Sex: Female
  Weight: 49.09 kg

DRUGS (1)
  1. MULTIHANCE [Suspect]
     Indication: NUCLEAR MAGNETIC RESONANCE IMAGING BRAIN
     Dosage: 5 ML ONCE IV
     Route: 042

REACTIONS (1)
  - JOINT STIFFNESS [None]
